FAERS Safety Report 5832323-3 (Version None)
Quarter: 2008Q3

REPORT INFORMATION
  Report Type: 
  Country: None (occurrence: None)
  Receive Date: 20080804
  Receipt Date: 20080728
  Transmission Date: 20090109
  Serious: Yes (Other)
  Sender: FDA-Public Use
  Company Number: B0528214A

PATIENT
  Age: 18 Year
  Sex: Female

DRUGS (6)
  1. PAXIL [Suspect]
     Indication: DRUG USE FOR UNKNOWN INDICATION
     Dosage: 20MG PER DAY
     Route: 048
     Dates: start: 20080701
  2. PAXIL [Suspect]
     Dosage: 100MG PER DAY
     Route: 048
     Dates: start: 20080703, end: 20080703
  3. ALPRAZOLAM [Concomitant]
     Route: 048
  4. GASMOTIN [Concomitant]
     Route: 048
  5. MYSLEE [Concomitant]
     Route: 048
  6. FLUNITRAZEPAM [Concomitant]
     Route: 065

REACTIONS (4)
  - GAIT DISTURBANCE [None]
  - NAUSEA [None]
  - OVERDOSE [None]
  - SUICIDE ATTEMPT [None]
